FAERS Safety Report 12676190 (Version 1)
Quarter: 2016Q3

REPORT INFORMATION
  Report Type: Spontaneous
  Country: US (occurrence: US)
  Receive Date: 20160823
  Receipt Date: 20160823
  Transmission Date: 20161109
  Serious: Yes (Other)
  Sender: FDA-Public Use
  Company Number: US-ASTELLAS-2016US031948

PATIENT
  Sex: Female

DRUGS (1)
  1. TARCEVA [Suspect]
     Active Substance: ERLOTINIB HYDROCHLORIDE
     Indication: LUNG NEOPLASM MALIGNANT
     Route: 065
     Dates: start: 20150721

REACTIONS (7)
  - Upper limb fracture [Unknown]
  - Dizziness [Unknown]
  - Fall [Unknown]
  - Alopecia [Unknown]
  - Vision blurred [Unknown]
  - Dry skin [Unknown]
  - Rash [Unknown]
